FAERS Safety Report 10593558 (Version 1)
Quarter: 2014Q4

REPORT INFORMATION
  Report Type: Spontaneous
  Country: CN (occurrence: CN)
  Receive Date: 20141119
  Receipt Date: 20141119
  Transmission Date: 20150529
  Serious: Yes (Hospitalization)
  Sender: FDA-Public Use
  Company Number: PHHY2014CN147452

PATIENT
  Age: 57 Year
  Sex: Female

DRUGS (2)
  1. PEGINTERFERON ALFA-2A [Suspect]
     Active Substance: PEGINTERFERON ALFA-2A
     Indication: HEPATITIS C
     Dosage: 180 UG, QW
     Route: 065
     Dates: start: 201104
  2. RIBAVIRIN. [Suspect]
     Active Substance: RIBAVIRIN
     Indication: HEPATITIS C
     Dosage: 600 MG, QD
     Route: 065
     Dates: start: 201104

REACTIONS (2)
  - Purpura [Recovered/Resolved]
  - Immune thrombocytopenic purpura [Recovered/Resolved]
